FAERS Safety Report 4756966-3 (Version None)
Quarter: 2005Q3

REPORT INFORMATION
  Report Type: 
  Country: None (occurrence: None)
  Receive Date: 20050830
  Receipt Date: 20050601
  Transmission Date: 20060218
  Serious: Yes (Hospitalization)
  Sender: FDA-Public Use
  Company Number: US-MERCK-0506USA00748

PATIENT
  Age: 60 Year
  Sex: Male
  Weight: 102 kg

DRUGS (21)
  1. VIOXX [Suspect]
     Indication: RHEUMATOID ARTHRITIS
     Route: 048
     Dates: start: 20000803, end: 20000808
  2. VIOXX [Suspect]
     Route: 048
     Dates: start: 20000808, end: 20020501
  3. VIOXX [Suspect]
     Route: 048
     Dates: start: 20020502, end: 20040601
  4. VIOXX [Suspect]
     Route: 048
     Dates: start: 20040701, end: 20040901
  5. VIOXX [Suspect]
     Indication: PAIN
     Route: 048
     Dates: start: 20000803, end: 20000808
  6. VIOXX [Suspect]
     Route: 048
     Dates: start: 20000808, end: 20020501
  7. VIOXX [Suspect]
     Route: 048
     Dates: start: 20020502, end: 20040601
  8. VIOXX [Suspect]
     Route: 048
     Dates: start: 20040701, end: 20040901
  9. FOLIC ACID [Concomitant]
     Route: 065
     Dates: start: 20000801
  10. [THERAPY UNSPECIFIED] [Concomitant]
     Route: 065
  11. PREVACID [Concomitant]
     Route: 065
  12. METHOTREXATE [Concomitant]
     Route: 065
  13. IRON (UNSPECIFIED) [Concomitant]
     Route: 065
  14. PREDNISONE [Concomitant]
     Route: 065
     Dates: start: 20000801
  15. ZITHROMAX [Concomitant]
     Route: 065
  16. [THERAPY UNSPECIFIED] [Concomitant]
     Route: 065
  17. HYDROCODONE BITARTRATE AND IBUPROFEN [Concomitant]
     Route: 065
  18. ZYRTEC [Concomitant]
     Route: 065
  19. ULTRAM [Concomitant]
     Route: 065
  20. VICODIN [Concomitant]
     Route: 065
  21. DOXEPIN HYDROCHLORIDE [Concomitant]
     Route: 065

REACTIONS (32)
  - ANAEMIA [None]
  - ANGINA PECTORIS [None]
  - ANGINA UNSTABLE [None]
  - ANXIETY [None]
  - ARTHRITIS [None]
  - ARTHROPATHY [None]
  - BENIGN PROSTATIC HYPERPLASIA [None]
  - BRONCHITIS [None]
  - CAROTID ARTERY STENOSIS [None]
  - CHEST DISCOMFORT [None]
  - CORONARY ARTERY DISEASE [None]
  - DEPRESSION [None]
  - DILATATION ATRIAL [None]
  - EXCORIATION [None]
  - FATIGUE [None]
  - GASTROOESOPHAGEAL REFLUX DISEASE [None]
  - HEPATIC ENZYME INCREASED [None]
  - HEPATIC STEATOSIS [None]
  - HIP ARTHROPLASTY [None]
  - HYPERTENSION [None]
  - MITRAL VALVE INCOMPETENCE [None]
  - MYOCARDIAL INFARCTION [None]
  - OEDEMA PERIPHERAL [None]
  - PAIN IN EXTREMITY [None]
  - PHLEBITIS [None]
  - PYREXIA [None]
  - RASH [None]
  - RASH ERYTHEMATOUS [None]
  - SINUS BRADYCARDIA [None]
  - TRICUSPID VALVE INCOMPETENCE [None]
  - URTICARIA [None]
  - VENTRICULAR HYPERTROPHY [None]
